FAERS Safety Report 8404915-9 (Version None)
Quarter: 2012Q2

REPORT INFORMATION
  Report Type: 
  Country: None (occurrence: None)
  Receive Date: 20120601
  Receipt Date: 20120413
  Transmission Date: 20120825
  Serious: No
  Sender: FDA-Public Use
  Company Number: US-ASTRAZENECA-2012SE19568

PATIENT
  Age: 49 Year
  Sex: Male

DRUGS (1)
  1. ATACAND HCT [Suspect]
     Dosage: 1 DF, TWO TIMES A DAY
     Route: 048

REACTIONS (2)
  - MALAISE [None]
  - CIRCUMSTANCE OR INFORMATION CAPABLE OF LEADING TO MEDICATION ERROR [None]
